FAERS Safety Report 6387763-3 (Version None)
Quarter: 2009Q3

REPORT INFORMATION
  Report Type: 
  Country: None (occurrence: None)
  Receive Date: 20090930
  Receipt Date: 20090917
  Transmission Date: 20100115
  Serious: Yes (Other)
  Sender: FDA-Public Use
  Company Number: ENT 2009-0165

PATIENT
  Sex: Female

DRUGS (2)
  1. COMTAN [Suspect]
  2. SINEMET [Concomitant]

REACTIONS (1)
  - MALIGNANT MELANOMA [None]
